FAERS Safety Report 23483674 (Version 3)
Quarter: 2024Q4

REPORT INFORMATION
  Report Type: Report from Study
  Country: US (occurrence: US)
  Receive Date: 20240205
  Receipt Date: 20241014
  Transmission Date: 20250115
  Serious: Yes (Hospitalization)
  Sender: BAUSCH AND LOMB
  Company Number: US-BAUSCH-BL-2024-001745

PATIENT
  Age: 71 Year
  Sex: Female

DRUGS (1)
  1. XIFAXAN [Suspect]
     Active Substance: RIFAXIMIN
     Indication: Hepatic encephalopathy
     Dosage: DURATION 11 MONTHS
     Route: 048
     Dates: start: 2023

REACTIONS (6)
  - Haemorrhoids [Unknown]
  - Portal vein thrombosis [Unknown]
  - Hyperammonaemia [Recovering/Resolving]
  - Ataxia [Unknown]
  - Constipation [Unknown]
  - Treatment noncompliance [Unknown]

NARRATIVE: CASE EVENT DATE: 20240130
